FAERS Safety Report 9258403 (Version 2)
Quarter: 2013Q2

REPORT INFORMATION
  Report Type: Spontaneous
  Country: US (occurrence: US)
  Receive Date: 20130426
  Receipt Date: 20130514
  Transmission Date: 20140414
  Serious: No
  Sender: FDA-Public Use
  Company Number: US-PFIZER INC-2013129913

PATIENT
  Age: 60 Year
  Sex: Female
  Weight: 49.89 kg

DRUGS (2)
  1. XELJANZ [Suspect]
     Indication: RHEUMATOID ARTHRITIS
     Dosage: 5 MG, 2X/DAY
     Route: 048
     Dates: start: 201304, end: 201304
  2. XELJANZ [Suspect]
     Dosage: 2.5 MG, 1X/DAY
     Route: 048
     Dates: start: 201304

REACTIONS (4)
  - Gastroenteritis viral [Unknown]
  - Diarrhoea [Unknown]
  - Flatulence [Not Recovered/Not Resolved]
  - Wrong technique in drug usage process [Unknown]
